FAERS Safety Report 8557707-4 (Version None)
Quarter: 2012Q3

REPORT INFORMATION
  Report Type: 
  Country: None (occurrence: None)
  Receive Date: 20120801
  Receipt Date: 20120726
  Transmission Date: 20120928
  Serious: No
  Sender: FDA-Public Use
  Company Number: US-PFIZER INC-2012182769

PATIENT
  Sex: Female
  Weight: 62.585 kg

DRUGS (1)
  1. LATANOPROST [Suspect]
     Indication: GLAUCOMA
     Dosage: UNK
     Dates: start: 20110101

REACTIONS (3)
  - DRUG INEFFECTIVE [None]
  - INFECTION [None]
  - INTRAOCULAR PRESSURE INCREASED [None]
